FAERS Safety Report 23032910 (Version 1)
Quarter: 2023Q4

REPORT INFORMATION
  Report Type: Spontaneous
  Country: US (occurrence: US)
  Receive Date: 20231005
  Receipt Date: 20231005
  Transmission Date: 20240110
  Serious: Yes (Hospitalization, Other)
  Sender: FDA-Public Use
  Company Number: US-BRISTOL-MYERS SQUIBB COMPANY-2023-139607

PATIENT
  Age: 65 Year
  Sex: Male
  Weight: 69.4 kg

DRUGS (1)
  1. POMALYST [Suspect]
     Active Substance: POMALIDOMIDE
     Indication: Plasma cell myeloma
     Route: 048
     Dates: start: 20211207, end: 20230921

REACTIONS (12)
  - Gait disturbance [Recovering/Resolving]
  - Feeding disorder [Recovering/Resolving]
  - Dyspnoea [Recovering/Resolving]
  - Pulmonary mass [Recovering/Resolving]
  - Blood potassium decreased [Recovering/Resolving]
  - Red blood cell count decreased [Recovering/Resolving]
  - Oedema peripheral [Recovering/Resolving]
  - Asthenia [Recovering/Resolving]
  - Fatigue [Recovering/Resolving]
  - Liver function test decreased [Recovering/Resolving]
  - Renal impairment [Recovering/Resolving]
  - Pulmonary function test decreased [Recovering/Resolving]
